FAERS Safety Report 22844889 (Version 3)
Quarter: 2025Q1

REPORT INFORMATION
  Report Type: Spontaneous
  Country: BR (occurrence: BR)
  Receive Date: 20230821
  Receipt Date: 20250113
  Transmission Date: 20250409
  Serious: Yes (Death, Other)
  Sender: CHATTEM
  Company Number: BR-SA-2023SA242916

PATIENT

DRUGS (12)
  1. HYDROCORTISONE [Suspect]
     Active Substance: HYDROCORTISONE
     Indication: Immunosuppressant drug therapy
     Route: 065
  2. METHYLPREDNISOLONE [Suspect]
     Active Substance: METHYLPREDNISOLONE
     Indication: Immunosuppressant drug therapy
     Route: 065
  3. PREDNISONE [Suspect]
     Active Substance: PREDNISONE
     Indication: Immunosuppressant drug therapy
     Dosage: 0.5 MG/KG, QD (MAXIMUM DOSE OF 30MG/D) FROM DAY 1 WITH A WEEKLY REDUCTION TO A DOSE OF 5MG/D BY DAY
     Route: 065
  4. PREDNISONE [Suspect]
     Active Substance: PREDNISONE
     Dosage: 0.5 MG/KG, QD (MAXIMUM DOSE OF 30MG/D) FROM DAY 1 WITH A WEEKLY REDUCTION TO A DOSE OF 5MG/D BY DAY
     Route: 065
  5. MYCOPHENOLATE SODIUM [Suspect]
     Active Substance: MYCOPHENOLATE SODIUM
     Indication: Immunosuppressant drug therapy
     Dosage: 720 MG, BID
     Route: 065
  6. TACROLIMUS [Suspect]
     Active Substance: TACROLIMUS
     Indication: Immunosuppressant drug therapy
     Dosage: 0.1 MG/KG, BID ADJUSTED TO MAINTAIN CONCENTRATION BETWEEN 5 AND 10NG/ML
     Route: 065
  7. TACROLIMUS [Suspect]
     Active Substance: TACROLIMUS
     Route: 065
  8. ANTI-THYMOCYTE GLOBULIN (RABBIT) NOS [Suspect]
     Active Substance: LAPINE T-LYMPHOCYTE IMMUNE GLOBULIN
     Indication: Product used for unknown indication
     Route: 065
  9. ALBENDAZOLE [Concomitant]
     Active Substance: ALBENDAZOLE
     Indication: Product used for unknown indication
     Route: 065
  10. DIPYRONE [Concomitant]
     Active Substance: DIPYRONE
     Indication: Product used for unknown indication
     Route: 065
  11. NYSTATIN [Concomitant]
     Active Substance: NYSTATIN
     Indication: Product used for unknown indication
     Route: 065
  12. SULFAMETHOXAZOLE\TRIMETHOPRIM [Concomitant]
     Active Substance: SULFAMETHOXAZOLE\TRIMETHOPRIM
     Indication: Product used for unknown indication
     Route: 065

REACTIONS (1)
  - Urosepsis [Fatal]
